FAERS Safety Report 9590174 (Version 1)
Quarter: 2013Q4

REPORT INFORMATION
  Report Type: Spontaneous
  Country: US (occurrence: US)
  Receive Date: 20131003
  Receipt Date: 20131003
  Transmission Date: 20140711
  Serious: No
  Sender: FDA-Public Use
  Company Number: US-AMGEN-USASP2012075136

PATIENT
  Sex: Female
  Weight: 78.01 kg

DRUGS (6)
  1. ENBREL [Suspect]
     Indication: PRODUCT USED FOR UNKNOWN INDICATION
     Dosage: 50 MG, QWK
     Route: 058
     Dates: start: 2007
  2. ORENCIA [Concomitant]
     Dosage: 125 MG/ML, UNK
  3. LIPITOR [Concomitant]
     Dosage: 10 MG, UNK
  4. ALLEGRA [Concomitant]
     Dosage: 30 MG, UNK
  5. ADVIL                              /00044201/ [Concomitant]
     Dosage: 200 MG, UNK
  6. MULTIVITAMIN                       /00097801/ [Concomitant]
     Dosage: UNK

REACTIONS (1)
  - Drug ineffective [Unknown]
